FAERS Safety Report 4441715-9 (Version None)
Quarter: 2004Q3

REPORT INFORMATION
  Report Type: 
  Country: None (occurrence: None)
  Receive Date: 20040907
  Receipt Date: 20030516
  Transmission Date: 20050211
  Serious: Yes (Death, Other)
  Sender: FDA-Public Use
  Company Number: PHBS2003JP05238

PATIENT
  Age: 70 Year

DRUGS (2)
  1. GLEEVEC [Suspect]
     Indication: CHRONIC MYELOID LEUKAEMIA
     Dosage: 400 MG/D
     Route: 048
  2. PROTON PUMP INHIBITOR [Concomitant]

REACTIONS (7)
  - BLOOD CREATININE INCREASED [None]
  - DEATH [None]
  - DEHYDRATION [None]
  - EATING DISORDER [None]
  - NAUSEA [None]
  - RENAL IMPAIRMENT [None]
  - STOMACH DISCOMFORT [None]
